FAERS Safety Report 6867274-9 (Version None)
Quarter: 2010Q2

REPORT INFORMATION
  Report Type: 
  Country: None (occurrence: None)
  Receive Date: 20100528
  Receipt Date: 20100308
  Transmission Date: 20101027
  Serious: No
  Sender: FDA-Public Use
  Company Number: 2010030119

PATIENT
  Age: 81 Year
  Sex: Female
  Weight: 68 kg

DRUGS (5)
  1. TOVIAZ [Suspect]
     Indication: MICTURITION URGENCY
     Dosage: 4 MG, 1X/DAY DAILY DOSE: 4 MG, ORAL
     Route: 048
     Dates: start: 20100304
  2. VITAMIN B COMPLEX (CALCIUM PANTOTHENATE, NCOTINAMIDE, PYRIDOXINE HYDRO [Concomitant]
  3. ASPIRIN [Concomitant]
  4. CHROMIUM (CHROMIUM) [Concomitant]
  5. SYNTHROID [Concomitant]

REACTIONS (3)
  - ABNORMAL FAECES [None]
  - BOWEL MOVEMENT IRREGULARITY [None]
  - CONSTIPATION [None]
